FAERS Safety Report 8956170 (Version 3)
Quarter: 2013Q4

REPORT INFORMATION
  Report Type: Spontaneous
  Country: US (occurrence: US)
  Receive Date: 20121210
  Receipt Date: 20131113
  Transmission Date: 20140711
  Serious: Yes (Hospitalization)
  Sender: FDA-Public Use
  Company Number: US-BAYER-2012-127157

PATIENT
  Age: 29 Year
  Sex: Female
  Weight: 81.63 kg

DRUGS (21)
  1. YAZ [Suspect]
     Indication: CONTRACEPTION
     Dosage: UNK
     Dates: start: 20060713, end: 20101001
  2. GIANVI [Suspect]
  3. ANTI-ASTHMATICS [Concomitant]
     Indication: ASTHMA
     Dosage: UNK, AS NEEDED
  4. THYROID PREPARATIONS [Concomitant]
     Indication: THYROID DISORDER
     Dosage: UNK
     Dates: start: 2009
  5. ZITHROMAX [Concomitant]
     Indication: SINUSITIS
     Dosage: UNK
     Dates: start: 20100910
  6. MUCINEX [Concomitant]
     Dosage: UNK
     Dates: start: 20100910
  7. CHLORASEPTIC [Concomitant]
     Dosage: UNK
     Dates: start: 20100910
  8. DEPAKOTE [Concomitant]
     Dosage: 1250 MG, UNK
  9. ADVAIR [Concomitant]
     Dosage: UNK
  10. ASA [Concomitant]
     Dosage: 81 MG, UNK
  11. FAZACLO [Concomitant]
     Dosage: 100 MG, UNK
  12. LEVOTHYROXINE [Concomitant]
  13. NAMENDA [Concomitant]
     Dosage: 10 MG, UNK
  14. DOCUSATE [Concomitant]
     Dosage: 100 MG, UNK
  15. LEXAPRO [Concomitant]
     Dosage: 10 MG, UNK
  16. LITHIUM [Concomitant]
     Dosage: 300 MG, UNK
  17. PROAIR HFA [Concomitant]
  18. SINGULAIR [Concomitant]
     Dosage: 10 MG, UNK
  19. PANTOPRAZOLE [Concomitant]
     Dosage: 40 MG, UNK
  20. MIRALAX [Concomitant]
     Dosage: 40 MG, UNK
  21. DIVALPROEX [Concomitant]
     Dosage: 750 MG, UNK

REACTIONS (2)
  - Deep vein thrombosis [Recovered/Resolved]
  - Thrombosis [None]
